FAERS Safety Report 4458957-9 (Version None)
Quarter: 2004Q3

REPORT INFORMATION
  Report Type: 
  Country: None (occurrence: None)
  Receive Date: 20040923
  Receipt Date: 20040923
  Transmission Date: 20050211
  Serious: Yes (Hospitalization)
  Sender: FDA-Public Use
  Company Number: None

PATIENT
  Age: 59 Year
  Sex: Male
  Weight: 89 kg

DRUGS (17)
  1. CYTARABINE (HDAC) [Suspect]
     Indication: LEUKAEMIA
     Dosage: 3 G/M2 OVER 3 HRS IV , Q 12 HRS
     Route: 042
     Dates: start: 20040806, end: 20040810
  2. AMLODIPINE [Concomitant]
  3. CEFEPIME [Concomitant]
  4. CIPROFLOXACIN [Concomitant]
  5. LIDOCAINE [Concomitant]
  6. LORAZEPAM [Concomitant]
  7. MENERDINE [Concomitant]
  8. DEXAMETHASONE [Concomitant]
  9. GRANISETRON [Concomitant]
  10. ODANSETRON [Concomitant]
  11. PREDNISONE [Concomitant]
  12. PURIDOXINE [Concomitant]
  13. SULFAMETHOXAZOLE [Concomitant]
  14. HEPARIN [Concomitant]
  15. ACETAMINOPHEN [Concomitant]
  16. DOCUSATE SODIUM [Concomitant]
  17. PROMETHAZINE [Concomitant]

REACTIONS (2)
  - CENTRAL LINE INFECTION [None]
  - VENOUS THROMBOSIS LIMB [None]
